FAERS Safety Report 11211588 (Version 1)
Quarter: 2015Q2

REPORT INFORMATION
  Report Type: Report from Study
  Country: CA (occurrence: CA)
  Receive Date: 20150623
  Receipt Date: 20150623
  Transmission Date: 20150821
  Serious: Yes (Other)
  Sender: FDA-Public Use
  Company Number: CA-ROCHE-1465787

PATIENT
  Age: 85 Year
  Sex: Female

DRUGS (8)
  1. ACTEMRA [Suspect]
     Active Substance: TOCILIZUMAB
     Indication: RHEUMATOID ARTHRITIS
     Route: 042
     Dates: start: 20140728
  2. MELOXICAM. [Concomitant]
     Active Substance: MELOXICAM
     Indication: PAIN
  3. TRAMADOL HYDROCHLORIDE. [Concomitant]
     Active Substance: TRAMADOL HYDROCHLORIDE
  4. ACTEMRA [Suspect]
     Active Substance: TOCILIZUMAB
     Route: 042
     Dates: start: 20141020, end: 20150414
  5. COVERSYL [Concomitant]
     Active Substance: PERINDOPRIL
  6. CYMBALTA [Concomitant]
     Active Substance: DULOXETINE HYDROCHLORIDE
     Indication: PAIN IN EXTREMITY
  7. PREDNISONE. [Concomitant]
     Active Substance: PREDNISONE
  8. GABAPENTIN. [Concomitant]
     Active Substance: GABAPENTIN
     Indication: PAIN IN EXTREMITY

REACTIONS (3)
  - Amnesia [Not Recovered/Not Resolved]
  - Infusion related reaction [Unknown]
  - Malaise [Unknown]

NARRATIVE: CASE EVENT DATE: 20141117
